FAERS Safety Report 7652285-6 (Version None)
Quarter: 2011Q3

REPORT INFORMATION
  Report Type: 
  Country: None (occurrence: None)
  Receive Date: 20110722
  Receipt Date: 20110106
  Transmission Date: 20111222
  Serious: Yes (Death)
  Sender: FDA-Public Use
  Company Number: UTC-004066

PATIENT
  Age: 60 Year
  Sex: Female

DRUGS (2)
  1. REMODULIN [Suspect]
     Indication: PULMONARY HYPERTENSION
     Dosage: SUBCUTANEOUS
     Route: 058
     Dates: start: 20090801
  2. REMODULIN [Suspect]
     Indication: PULMONARY HYPERTENSION
     Dosage: SUBCUTANEOUS
     Route: 058
     Dates: start: 20070305, end: 20090801

REACTIONS (1)
  - DISEASE PROGRESSION [None]
